FAERS Safety Report 11878449 (Version 1)
Quarter: 2015Q4

REPORT INFORMATION
  Report Type: Spontaneous
  Country: US (occurrence: US)
  Receive Date: 20151230
  Receipt Date: 20151230
  Transmission Date: 20160305
  Serious: No
  Sender: FDA-Public Use
  Company Number: US-BIOGEN-2015BI147444

PATIENT
  Sex: Female

DRUGS (1)
  1. AVONEX [Suspect]
     Active Substance: INTERFERON BETA-1A
     Indication: MULTIPLE SCLEROSIS
     Route: 030
     Dates: start: 201108, end: 201202

REACTIONS (4)
  - Multiple sclerosis relapse [Unknown]
  - Malaise [Unknown]
  - Decreased activity [Unknown]
  - Drug ineffective [Unknown]
